FAERS Safety Report 7549066-0 (Version None)
Quarter: 2011Q2

REPORT INFORMATION
  Report Type: 
  Country: None (occurrence: None)
  Receive Date: 20110615
  Receipt Date: 20110601
  Transmission Date: 20111010
  Serious: Yes (Life-Threatening)
  Sender: FDA-Public Use
  Company Number: GB-SANOFI-AVENTIS-2011SA036800

PATIENT
  Age: 58 Year
  Sex: Female

DRUGS (14)
  1. DOXAZOSIN MESYLATE [Concomitant]
  2. ASPIRIN [Concomitant]
  3. PANTOPRAZOLE [Concomitant]
  4. HYDROXYCHLOROQUINE SULFATE [Suspect]
     Route: 048
     Dates: start: 20110512, end: 20110519
  5. AMITRIPTYLINE HCL [Concomitant]
  6. PERPHENAZINE [Concomitant]
  7. FOLIC ACID [Concomitant]
  8. LISINOPRIL [Concomitant]
  9. MADOPAR [Concomitant]
  10. SOLPADOL [Concomitant]
  11. ATORVASTATIN [Concomitant]
  12. CO-TENIDONE [Concomitant]
  13. PREDNISOLONE [Concomitant]
  14. NITROLINGUAL [Concomitant]

REACTIONS (4)
  - ANGIOEDEMA [None]
  - ANGINA PECTORIS [None]
  - DYSPNOEA [None]
  - CONDITION AGGRAVATED [None]
